FAERS Safety Report 7059516-4 (Version None)
Quarter: 2010Q4

REPORT INFORMATION
  Report Type: 
  Country: None (occurrence: None)
  Receive Date: 20101025
  Receipt Date: 20101012
  Transmission Date: 20110411
  Serious: Yes (Death, Other)
  Sender: FDA-Public Use
  Company Number: MX-GENZYME-THYM-1001943

PATIENT
  Age: 15 Year
  Sex: Male
  Weight: 52 kg

DRUGS (8)
  1. THYMOGLOBULIN [Suspect]
     Indication: BONE MARROW CONDITIONING REGIMEN
     Dosage: 130 MG, UNK
     Route: 042
     Dates: start: 20101002, end: 20101002
  2. THYMOGLOBULIN [Suspect]
     Indication: PROPHYLAXIS AGAINST GRAFT VERSUS HOST DISEASE
  3. ACICLOVIR [Concomitant]
     Indication: BONE MARROW CONDITIONING REGIMEN
     Dosage: 250 MG, TID
     Dates: start: 20100928
  4. FLUCONAZOLE [Concomitant]
     Indication: PROPHYLAXIS
     Dosage: 100 MG, QD
     Dates: start: 20100928
  5. CIPROFLOXACIN [Concomitant]
     Indication: PROPHYLAXIS
     Dosage: 250 MG, BID
     Dates: start: 20100928
  6. BUSULFAN [Concomitant]
     Indication: BONE MARROW CONDITIONING REGIMEN
     Dosage: 52 MG, QID
     Dates: start: 20100928
  7. DEFERASIROX [Concomitant]
     Indication: MINERAL SUPPLEMENTATION
     Dosage: 500 MG, BID
     Dates: start: 20100928
  8. ONDANSETRON [Concomitant]
     Indication: PROPHYLAXIS OF NAUSEA AND VOMITING
     Dosage: 8 MG, TID
     Dates: start: 20100928

REACTIONS (4)
  - HYPOTENSION [None]
  - PYREXIA [None]
  - RESPIRATORY ARREST [None]
  - RESPIRATORY FAILURE [None]
